FAERS Safety Report 7163575-8 (Version None)
Quarter: 2010Q4

REPORT INFORMATION
  Report Type: 
  Country: None (occurrence: None)
  Receive Date: 20101215
  Receipt Date: 20100512
  Transmission Date: 20110411
  Serious: Yes (Other)
  Sender: FDA-Public Use
  Company Number: BR-PFIZER INC-2010059919

PATIENT
  Sex: Female
  Weight: 71 kg

DRUGS (2)
  1. LYRICA [Suspect]
     Indication: FIBROMYALGIA
     Dosage: 150MG, DAILY
     Route: 048
     Dates: start: 20100401, end: 20100101
  2. METHADONE [Concomitant]
     Dosage: UNK

REACTIONS (4)
  - FATIGUE [None]
  - PLATELET COUNT DECREASED [None]
  - SEPSIS [None]
  - SWELLING [None]
